FAERS Safety Report 5724889-9 (Version None)
Quarter: 2008Q2

REPORT INFORMATION
  Report Type: 
  Country: None (occurrence: None)
  Receive Date: 20080429
  Receipt Date: 20080411
  Transmission Date: 20081010
  Serious: Yes (Hospitalization)
  Sender: FDA-Public Use
  Company Number: 2008EU000740

PATIENT
  Age: 17 Year
  Sex: Female
  Weight: 45 kg

DRUGS (1)
  1. ALEFACEPT(ALEFACEPT) INJECTION [Suspect]
     Indication: GRAFT VERSUS HOST DISEASE
     Dosage: 15 MG, UID/QD, INTRAMUSCULAR
     Route: 030
     Dates: start: 20080319, end: 20080408

REACTIONS (4)
  - DISCOMFORT [None]
  - MYALGIA [None]
  - PARAESTHESIA [None]
  - VOMITING [None]
